FAERS Safety Report 6196545-7 (Version None)
Quarter: 2009Q2

REPORT INFORMATION
  Report Type: 
  Country: None (occurrence: None)
  Receive Date: 20090520
  Receipt Date: 20090513
  Transmission Date: 20091009
  Serious: Yes (Hospitalization, Other)
  Sender: FDA-Public Use
  Company Number: JP-BAYER-200910213BYL

PATIENT
  Age: 15 Year
  Sex: Female
  Weight: 50 kg

DRUGS (28)
  1. FLUDARA [Suspect]
     Indication: ACUTE MYELOID LEUKAEMIA
     Dosage: AS USED: 44 MG  UNIT DOSE: 50 MG
     Route: 042
     Dates: start: 20080707, end: 20080711
  2. FLUDARA [Suspect]
     Dosage: AS USED: 38 MG  UNIT DOSE: 50 MG
     Route: 042
     Dates: start: 20080808, end: 20080812
  3. MELPHALAN [Suspect]
     Indication: ACUTE MYELOID LEUKAEMIA
  4. CYLOCIDE [Concomitant]
     Indication: ACUTE MYELOID LEUKAEMIA
     Dosage: AS USED: 3 G
     Route: 041
     Dates: start: 20080707, end: 20080711
  5. NEUTROGIN [Concomitant]
     Indication: ALLOGENIC BONE MARROW TRANSPLANTATION THERAPY
     Dosage: AS USED: 250 ?G
     Route: 065
     Dates: start: 20080712, end: 20080807
  6. NEUTROGIN [Concomitant]
     Dosage: AS USED: 500 ?G
     Route: 065
     Dates: start: 20080707, end: 20080711
  7. NEUTROGIN [Concomitant]
     Indication: INFECTION PROPHYLAXIS
     Dosage: AS USED: 250 ?G
     Route: 042
     Dates: start: 20080808, end: 20080813
  8. NEUTROGIN [Concomitant]
     Dosage: AS USED: 250 ?G
     Route: 042
     Dates: start: 20080820, end: 20080907
  9. PROGRAF [Concomitant]
     Indication: PROPHYLAXIS AGAINST GRAFT VERSUS HOST DISEASE
     Dosage: AS USED: 1 MG
     Route: 042
     Dates: start: 20080814, end: 20080916
  10. PROGRAF [Concomitant]
     Dosage: AS USED: 3 MG
     Route: 048
     Dates: start: 20080926
  11. FUNGUARD [Concomitant]
     Indication: INFECTION PROPHYLAXIS
     Dosage: AS USED: 50 MG
     Route: 042
     Dates: start: 20080811, end: 20080916
  12. IMMUNE GLOBULIN INTRAVENOUS (HUMAN) [Concomitant]
     Indication: INFECTION PROPHYLAXIS
     Dosage: AS USED: 5 G
     Route: 042
     Dates: start: 20080901, end: 20080901
  13. IMMUNE GLOBULIN INTRAVENOUS (HUMAN) [Concomitant]
     Dosage: AS USED: 5 G
     Route: 042
     Dates: start: 20080908, end: 20080908
  14. IMMUNE GLOBULIN INTRAVENOUS (HUMAN) [Concomitant]
     Dosage: AS USED: 5 G
     Route: 042
     Dates: start: 20080825, end: 20080825
  15. VIRUHEXAL [Concomitant]
     Indication: INFECTION PROPHYLAXIS
     Dosage: AS USED: 250 MG
     Route: 042
     Dates: start: 20080814, end: 20080903
  16. MODACIN [Concomitant]
     Indication: INFECTION
     Dosage: AS USED: 500 MG
     Route: 042
     Dates: start: 20080807, end: 20080903
  17. METHOTREXATE [Concomitant]
     Indication: PROPHYLAXIS AGAINST GRAFT VERSUS HOST DISEASE
     Dosage: AS USED: 22.5 MG
     Route: 042
     Dates: start: 20080816, end: 20080816
  18. METHOTREXATE [Concomitant]
     Dosage: AS USED: 15 MG
     Route: 042
     Dates: start: 20080821, end: 20080821
  19. METHOTREXATE [Concomitant]
     Dosage: AS USED: 15 MG
     Route: 042
     Dates: start: 20080818, end: 20080818
  20. METHOTREXATE [Concomitant]
     Dosage: AS USED: 15 MG
     Route: 042
     Dates: start: 20080826, end: 20080826
  21. ZOVIRAX [Concomitant]
     Indication: INFECTION PROPHYLAXIS
     Dosage: AS USED: 400 MG
     Route: 048
     Dates: start: 20080925
  22. ZOVIRAX [Concomitant]
     Dosage: AS USED: 1000 MG
     Route: 048
     Dates: start: 20080808, end: 20080813
  23. ZOVIRAX [Concomitant]
     Dosage: AS USED: 1000 MG
     Route: 048
     Dates: start: 20080904, end: 20080924
  24. BACTRAMIN [Concomitant]
     Indication: INFECTION PROPHYLAXIS
     Dosage: AS USED: 4 DF  UNIT DOSE: 1 DF
     Route: 048
     Dates: start: 20080908, end: 20081020
  25. BACTRAMIN [Concomitant]
     Dosage: AS USED: 320 MG
     Route: 048
     Dates: start: 20080811, end: 20080811
  26. FUNGIZONE [Concomitant]
     Indication: INFECTION PROPHYLAXIS
     Dosage: AS USED: 12 ML
     Route: 048
     Dates: start: 20080807, end: 20080811
  27. FUNGIZONE [Concomitant]
     Dosage: AS USED: 12 ML
     Route: 048
     Dates: start: 20080917
  28. VENOGLOBULIN [Concomitant]
     Indication: INFECTION PROPHYLAXIS
     Dosage: AS USED: 5 G
     Route: 042
     Dates: start: 20080818, end: 20080818

REACTIONS (6)
  - BONE MARROW FAILURE [None]
  - CARDIAC FAILURE [None]
  - DIARRHOEA [None]
  - LIVER DISORDER [None]
  - RASH [None]
  - RENAL DISORDER [None]
